FAERS Safety Report 4798889-X (Version None)
Quarter: 2005Q4

REPORT INFORMATION
  Report Type: 
  Country: None (occurrence: None)
  Receive Date: 20051014
  Receipt Date: 20051003
  Transmission Date: 20060501
  Serious: Yes (Hospitalization)
  Sender: FDA-Public Use
  Company Number: 2005CG01636

PATIENT
  Age: 74 Year
  Sex: Female
  Weight: 49 kg

DRUGS (6)
  1. MOPRAL [Suspect]
     Route: 048
     Dates: start: 20050816, end: 20050822
  2. MOPRAL [Suspect]
     Route: 048
     Dates: start: 20050901, end: 20050905
  3. BACTRIM [Suspect]
     Route: 042
     Dates: start: 20050816, end: 20050820
  4. BACTRIM [Suspect]
     Route: 042
     Dates: start: 20050820, end: 20050822
  5. HEPARIN [Concomitant]
     Dates: start: 20050816, end: 20050820
  6. PREVISCAN [Concomitant]
     Dates: start: 20050816

REACTIONS (8)
  - BARTTER'S SYNDROME [None]
  - DERMATITIS EXFOLIATIVE [None]
  - DRUG INTOLERANCE [None]
  - LEUKAEMIA [None]
  - MALIGNANT NEOPLASM PROGRESSION [None]
  - PNEUMOCYSTIS JIROVECI PNEUMONIA [None]
  - RASH [None]
  - VENA CAVA THROMBOSIS [None]
